FAERS Safety Report 24289969 (Version 2)
Quarter: 2024Q3

REPORT INFORMATION
  Report Type: Spontaneous
  Country: ZA (occurrence: ZA)
  Receive Date: 20240906
  Receipt Date: 20240912
  Transmission Date: 20241016
  Serious: No
  Sender: MYLAN
  Company Number: ZA-MYLANLABS-2024M1081173

PATIENT
  Sex: Male

DRUGS (2)
  1. CELECOXIB [Suspect]
     Active Substance: CELECOXIB
     Indication: Spondylitis
     Dosage: 200 MILLIGRAM, QD
     Route: 065
     Dates: start: 202306
  2. SULFASALAZINE [Concomitant]
     Active Substance: SULFASALAZINE
     Dosage: 1000 MILLIGRAM, BID
     Route: 065
     Dates: start: 202403, end: 202407

REACTIONS (1)
  - Mycobacterium tuberculosis complex test positive [Unknown]
